FAERS Safety Report 8352674-0 (Version None)
Quarter: 2012Q2

REPORT INFORMATION
  Report Type: 
  Country: None (occurrence: None)
  Receive Date: 20120511
  Receipt Date: 20120509
  Transmission Date: 20120825
  Serious: Yes (Death, Other)
  Sender: FDA-Public Use
  Company Number: VE-PFIZER INC-2012114300

PATIENT
  Sex: Male

DRUGS (2)
  1. ZOLOFT [Concomitant]
  2. LIPITOR [Suspect]
     Dosage: UNK

REACTIONS (1)
  - DEATH [None]
